FAERS Safety Report 8386926-5 (Version None)
Quarter: 2012Q2

REPORT INFORMATION
  Report Type: 
  Country: None (occurrence: None)
  Receive Date: 20120525
  Receipt Date: 20120517
  Transmission Date: 20120825
  Serious: Yes (Death)
  Sender: FDA-Public Use
  Company Number: US-CELGENEUS-163-21880-12042185

PATIENT
  Sex: Male

DRUGS (10)
  1. SULFAMYLON [Concomitant]
     Dosage: 5 PERCENT
     Route: 065
  2. VITAMIN D [Concomitant]
     Dosage: 400
     Route: 065
  3. NEURONTIN [Concomitant]
     Dosage: 400 MILLIGRAM
     Route: 065
  4. MULTIPLE VITAMIN [Concomitant]
     Route: 065
  5. FLUTICASONE FUROATE [Concomitant]
     Dosage: 50 MICROGRAM
     Route: 065
  6. VITAMIN B COMPLEX CAP [Concomitant]
     Route: 065
  7. VELCADE [Concomitant]
     Route: 065
     Dates: start: 20120101
  8. ACYCLOVIR [Concomitant]
     Dosage: 400 MILLIGRAM
     Route: 065
  9. VITAMIN E [Concomitant]
     Dosage: 600 UNITS
     Route: 065
  10. REVLIMID [Suspect]
     Dosage: 10 MILLIGRAM
     Route: 048
     Dates: start: 20110524, end: 20120122

REACTIONS (1)
  - CHRONIC LYMPHOCYTIC LEUKAEMIA [None]
